FAERS Safety Report 5712693-7 (Version None)
Quarter: 2008Q2

REPORT INFORMATION
  Report Type: 
  Country: None (occurrence: None)
  Receive Date: 20080418
  Receipt Date: 20080412
  Transmission Date: 20081010
  Serious: Yes (Other)
  Sender: FDA-Public Use
  Company Number: CHPA2008US06602

PATIENT
  Age: 33 Year
  Sex: Female

DRUGS (1)
  1. TRANSDERM SCOP [Suspect]
     Indication: MOTION SICKNESS
     Dosage: 1.5 MG, Q72H, TRANSDERMAL
     Route: 062
     Dates: start: 20080402, end: 20080406

REACTIONS (9)
  - ASTHENIA [None]
  - DRY MOUTH [None]
  - DYSURIA [None]
  - FATIGUE [None]
  - GLAUCOMA [None]
  - HEADACHE [None]
  - HYPOTENSION [None]
  - NAUSEA [None]
  - VISION BLURRED [None]
